FAERS Safety Report 4424745-2 (Version None)
Quarter: 2004Q3

REPORT INFORMATION
  Report Type: 
  Country: None (occurrence: None)
  Receive Date: 20040719
  Receipt Date: 20040128
  Transmission Date: 20050211
  Serious: Yes (Hospitalization)
  Sender: FDA-Public Use
  Company Number: 191529

PATIENT
  Age: 42 Year
  Sex: Female

DRUGS (4)
  1. AVONEX [Suspect]
     Indication: MULTIPLE SCLEROSIS
     Dates: start: 20000101, end: 20030101
  2. ASACOL [Concomitant]
  3. NEXIUM [Concomitant]
  4. ZANTAC [Concomitant]

REACTIONS (2)
  - CHEST WALL PAIN [None]
  - MULTIPLE SCLEROSIS RELAPSE [None]
